FAERS Safety Report 7474936-1 (Version None)
Quarter: 2011Q2

REPORT INFORMATION
  Report Type: 
  Country: None (occurrence: None)
  Receive Date: 20110512
  Receipt Date: 20081103
  Transmission Date: 20111010
  Serious: Yes (Death, Other)
  Sender: FDA-Public Use
  Company Number: US-BAYER-200837476NA

PATIENT
  Age: 49 Year
  Sex: Female
  Weight: 68.027 kg

DRUGS (18)
  1. TRASYLOL [Suspect]
     Dosage: 50 ML, Q1HR
     Route: 042
     Dates: start: 20061108, end: 20061108
  2. INSULIN [INSULIN] [Concomitant]
     Dosage: 2 U, Q1HR, IV DRIP
     Route: 042
     Dates: start: 20061108, end: 20061108
  3. DECADRON [Concomitant]
     Dosage: UNK
     Dates: start: 20061108, end: 20061108
  4. PROTAMINE SULFATE [Concomitant]
     Dosage: UNK
     Dates: start: 20061108, end: 20061108
  5. VITAMIN D [Concomitant]
  6. PLATELETS [Concomitant]
     Dosage: 6 U, UNK
     Route: 042
     Dates: start: 20061108
  7. LASIX [Concomitant]
     Dosage: 40 MG, QD
     Route: 048
  8. ETOMIDATE [Concomitant]
     Dosage: UNK
     Dates: end: 20061108
  9. VECURONIUM BROMIDE [Concomitant]
     Dosage: UNK
     Dates: start: 20061108, end: 20061108
  10. TRASYLOL [Suspect]
     Indication: AORTIC VALVE REPLACEMENT
     Dosage: 200 ML, ONCE
     Route: 042
     Dates: start: 20061108, end: 20061108
  11. COZAAR [Concomitant]
     Dosage: 25 MG, QD
     Route: 048
  12. VERSED [Concomitant]
     Dosage: UNK
     Route: 042
     Dates: start: 20061108
  13. ANCEF [Concomitant]
     Dosage: 1G IN 500CC UNK, UNK
     Dates: start: 20061108, end: 20061108
  14. POTASSIUM CHLORIDE [Concomitant]
     Dosage: 40 MG, QD
     Route: 048
  15. ALPHA [Concomitant]
     Dosage: 3000 U, UNK
     Dates: start: 20061108, end: 20061108
  16. LIDOCAINE [Concomitant]
     Dosage: UNK
     Route: 042
     Dates: start: 20061108, end: 20061108
  17. PHENYLEPHRIN [Concomitant]
     Dosage: UNK, INTRAVENOUS DRIP
     Route: 042
     Dates: start: 20061108, end: 20061108
  18. PLASMA [Concomitant]
     Dosage: 2 U, UNK
     Dates: start: 20061108

REACTIONS (13)
  - RENAL INJURY [None]
  - STRESS [None]
  - RENAL IMPAIRMENT [None]
  - EMOTIONAL DISORDER [None]
  - PAIN [None]
  - INJURY [None]
  - ANXIETY [None]
  - ANHEDONIA [None]
  - DEATH [None]
  - UNEVALUABLE EVENT [None]
  - RENAL FAILURE [None]
  - MULTI-ORGAN FAILURE [None]
  - FEAR [None]
